FAERS Safety Report 20501235 (Version 1)
Quarter: 2022Q1

REPORT INFORMATION
  Report Type: Spontaneous
  Country: US (occurrence: None)
  Receive Date: 20220218
  Receipt Date: 20220218
  Transmission Date: 20220423
  Serious: Yes (Other)
  Sender: FDA-Public Use
  Company Number: None

PATIENT
  Age: 61 Year
  Sex: Male
  Weight: 61 kg

DRUGS (4)
  1. ARIPIPRAZOLE [Suspect]
     Active Substance: ARIPIPRAZOLE
     Indication: Affective disorder
     Dosage: FREQUENCY : DAILY;?
     Route: 048
     Dates: start: 20211126, end: 20211220
  2. DIVALPROEX SODIUM [Concomitant]
     Active Substance: DIVALPROEX SODIUM
  3. LORAZEPAM [Concomitant]
     Active Substance: LORAZEPAM
  4. PRIMIDONE [Concomitant]
     Active Substance: PRIMIDONE

REACTIONS (4)
  - Catatonia [None]
  - Movement disorder [None]
  - Tremor [None]
  - Eating disorder [None]

NARRATIVE: CASE EVENT DATE: 20211210
